FAERS Safety Report 5636065-9 (Version None)
Quarter: 2008Q1

REPORT INFORMATION
  Report Type: 
  Country: None (occurrence: None)
  Receive Date: 20080225
  Receipt Date: 20080219
  Transmission Date: 20080703
  Serious: Yes (Life-Threatening, Hospitalization, Other)
  Sender: FDA-Public Use
  Company Number: US-RB-000007-08

PATIENT
  Sex: Male

DRUGS (6)
  1. SUBOXONE [Suspect]
     Route: 060
     Dates: start: 20080207
  2. RISPERDAL [Concomitant]
     Indication: DRUG USE FOR UNKNOWN INDICATION
     Route: 048
  3. ADVAIR DISKUS 100/50 [Concomitant]
     Indication: DRUG USE FOR UNKNOWN INDICATION
     Route: 055
  4. PLAVIX [Concomitant]
     Indication: CORONARY ARTERY DISEASE
     Route: 048
  5. CARDIAC CATHETERIZATION DYE [Suspect]
     Dosage: UNKNOWN DOSE
     Route: 040
     Dates: start: 20080206, end: 20080206
  6. CARDIAC CATHETERIZATION DYE [Suspect]
     Dosage: UNKNOWN DOSE
     Route: 040
     Dates: start: 20080204, end: 20080204

REACTIONS (2)
  - LETHARGY [None]
  - RENAL FAILURE ACUTE [None]
